FAERS Safety Report 9393494 (Version 1)
Quarter: 2013Q3

REPORT INFORMATION
  Report Type: Report from Study
  Country: JP (occurrence: JP)
  Receive Date: 20130710
  Receipt Date: 20130710
  Transmission Date: 20140515
  Serious: Yes (Hospitalization)
  Sender: FDA-Public Use
  Company Number: PHHY2013JP071991

PATIENT
  Age: 14 Year
  Sex: Male
  Weight: 31.8 kg

DRUGS (9)
  1. SOMATROPIN [Suspect]
     Indication: GROWTH HORMONE DEFICIENCY
     Dosage: 6.0 MG, QW
     Dates: start: 20120215, end: 20120306
  2. SOMATROPIN [Suspect]
     Dates: start: 20120323
  3. LAC-B [Concomitant]
     Indication: MALNUTRITION
     Dosage: 2 G, QD
     Route: 048
     Dates: start: 20000303
  4. MIYA BM [Concomitant]
     Indication: MALNUTRITION
     Dosage: 2 G, QD
     Route: 048
     Dates: start: 20000303
  5. ADONA [Concomitant]
     Indication: MALNUTRITION
     Dosage: 30 MG, QD
     Route: 048
     Dates: start: 20000303
  6. TRANSAMIN [Concomitant]
     Indication: MALNUTRITION
     Dosage: 500 MG, QD
     Route: 048
     Dates: start: 20000303
  7. JUVELA [Concomitant]
     Indication: MALNUTRITION
     Dosage: 50 MG, QD
     Route: 048
     Dates: start: 20000303
  8. L CARTIN [Concomitant]
     Indication: MALNUTRITION
     Dosage: 200 MG, QD
     Route: 048
     Dates: start: 20000303
  9. FOLIAMIN [Concomitant]
     Indication: MALNUTRITION
     Dosage: 10 MG, QD
     Route: 048
     Dates: start: 20000303

REACTIONS (2)
  - Anaemia [Recovered/Resolved]
  - Pallor [Unknown]
